FAERS Safety Report 11391888 (Version 2)
Quarter: 2015Q3

REPORT INFORMATION
  Report Type: Spontaneous
  Country: US (occurrence: None)
  Receive Date: 20150814
  Receipt Date: 20150821
  Transmission Date: 20151125
  Serious: Yes (Hospitalization)
  Sender: FDA-Public Use
  Company Number: 1713747-2015-999254

PATIENT
  Age: 80 Year
  Sex: Female
  Weight: 80.5 kg

DRUGS (7)
  1. RENVELA [Concomitant]
     Active Substance: SEVELAMER CARBONATE
  2. DELFLEX [Suspect]
     Active Substance: CALCIUM CHLORIDE\DEXTROSE MONOHYDRATE\MAGNESIUM CHLORIDE\SODIUM CHLORIDE\SODIUM LACTATE
     Indication: PERITONEAL DIALYSIS
     Route: 033
  3. LIBERTY CYCLER [Concomitant]
     Active Substance: DEVICE
  4. LIBERTY CYCLER SET [Concomitant]
     Active Substance: DEVICE
  5. MIDODRINE [Concomitant]
     Active Substance: MIDODRINE
  6. CALCITRIOL. [Concomitant]
     Active Substance: CALCITRIOL
  7. ARANESEP [Concomitant]

REACTIONS (1)
  - Hypotension [None]

NARRATIVE: CASE EVENT DATE: 20150710
